FAERS Safety Report 6079871-1 (Version None)
Quarter: 2009Q1

REPORT INFORMATION
  Report Type: 
  Country: None (occurrence: None)
  Receive Date: 20090212
  Receipt Date: 20090202
  Transmission Date: 20090719
  Serious: Yes (Hospitalization, Other)
  Sender: FDA-Public Use
  Company Number: 2008-04702

PATIENT
  Age: 45 Year
  Sex: Male

DRUGS (5)
  1. VELCADE [Suspect]
     Indication: MULTIPLE MYELOMA
     Dosage: INTRAVENOUS
     Route: 042
     Dates: start: 20080916, end: 20080929
  2. DEXAMETHASONE [Concomitant]
  3. PREDNISOLONE [Concomitant]
  4. BACLOFEN [Concomitant]
  5. ATARAX [Concomitant]

REACTIONS (6)
  - BLINDNESS TRANSIENT [None]
  - CONDITION AGGRAVATED [None]
  - ENCEPHALOPATHY [None]
  - HEADACHE [None]
  - HERPES ZOSTER OTICUS [None]
  - VISION BLURRED [None]
